FAERS Safety Report 7471973-8 (Version None)
Quarter: 2011Q2

REPORT INFORMATION
  Report Type: 
  Country: None (occurrence: None)
  Receive Date: 20110511
  Receipt Date: 20100827
  Transmission Date: 20111010
  Serious: No
  Sender: FDA-Public Use
  Company Number: A0878124A

PATIENT
  Age: 58 Year
  Sex: Female

DRUGS (2)
  1. TYKERB [Suspect]
     Indication: BREAST CANCER
     Dosage: 1250MG PER DAY
     Route: 048
     Dates: start: 20100226, end: 20100823
  2. NO CONCURRENT MEDICATION [Concomitant]

REACTIONS (3)
  - HYPERSENSITIVITY [None]
  - SKIN ULCER [None]
  - PHARYNGEAL OEDEMA [None]
